FAERS Safety Report 18009304 (Version 1)
Quarter: 2020Q3

REPORT INFORMATION
  Report Type: Spontaneous
  Country: CN (occurrence: CN)
  Receive Date: 20200710
  Receipt Date: 20200710
  Transmission Date: 20201103
  Serious: Yes (Other)
  Sender: FDA-Public Use
  Company Number: CN-BAXTER-2020BAX013987

PATIENT
  Age: 78 Year
  Sex: Female
  Weight: 54.2 kg

DRUGS (3)
  1. ENDOXAN [Suspect]
     Active Substance: CYCLOPHOSPHAMIDE
     Indication: IGA NEPHROPATHY
     Dosage: CYCLOPHOSPHAMIDE 0.4 G + 0.9% SODIUM CHLORIDE 100 ML
     Route: 041
     Dates: start: 20200624, end: 20200624
  2. SODIUM CHLORIDE. [Suspect]
     Active Substance: SODIUM CHLORIDE
     Indication: MEDICATION DILUTION
     Dosage: CYCLOPHOSPHAMIDE 0.4 G + 0.9% SODIUM CHLORIDE 100 ML
     Route: 041
     Dates: start: 20200624, end: 20200624
  3. ENDOXAN [Suspect]
     Active Substance: CYCLOPHOSPHAMIDE
     Indication: GLOMERULONEPHRITIS MEMBRANOUS

REACTIONS (4)
  - Palpitations [Recovered/Resolved]
  - Chest discomfort [Recovered/Resolved]
  - Tachycardia [Recovered/Resolved]
  - Panic reaction [Recovering/Resolving]

NARRATIVE: CASE EVENT DATE: 20200624
